FAERS Safety Report 15336194 (Version 5)
Quarter: 2019Q3

REPORT INFORMATION
  Report Type: Report from Study
  Country: CA (occurrence: CA)
  Receive Date: 20180830
  Receipt Date: 20190830
  Transmission Date: 20191004
  Serious: Yes (Other)
  Sender: FDA-Public Use
  Company Number: CA-BRISTOL-MYERS SQUIBB COMPANY-BMS-2017-091732

PATIENT
  Age: 81 Year
  Sex: Female

DRUGS (4)
  1. ABATACEPT [Suspect]
     Active Substance: ABATACEPT
     Indication: RHEUMATOID ARTHRITIS
     Dosage: 500 MG, Q4WK
     Route: 042
     Dates: start: 20170524
  2. RAMIPRIL. [Concomitant]
     Active Substance: RAMIPRIL
     Indication: PRODUCT USED FOR UNKNOWN INDICATION
     Route: 065
  3. PREDNISONE. [Concomitant]
     Active Substance: PREDNISONE
     Indication: PRODUCT USED FOR UNKNOWN INDICATION
     Route: 065
  4. TYLENOL [Concomitant]
     Active Substance: ACETAMINOPHEN
     Indication: PRODUCT USED FOR UNKNOWN INDICATION
     Route: 065

REACTIONS (16)
  - Peripheral swelling [Recovering/Resolving]
  - Vitamin B12 decreased [Unknown]
  - Musculoskeletal discomfort [Recovering/Resolving]
  - Urinary tract infection [Recovered/Resolved]
  - Spinal compression fracture [Unknown]
  - Fatigue [Unknown]
  - Spinal fracture [Unknown]
  - Spinal pain [Not Recovered/Not Resolved]
  - Burning sensation [Recovering/Resolving]
  - Joint range of motion decreased [Recovering/Resolving]
  - Eye infection viral [Recovered/Resolved]
  - Rheumatoid arthritis [Unknown]
  - Joint swelling [Unknown]
  - Pain in extremity [Recovering/Resolving]
  - Blood pressure fluctuation [Unknown]
  - Drug ineffective [Unknown]

NARRATIVE: CASE EVENT DATE: 20170930
